FAERS Safety Report 7889863-5 (Version None)
Quarter: 2011Q4

REPORT INFORMATION
  Report Type: 
  Country: None (occurrence: None)
  Receive Date: 20111103
  Receipt Date: 20111028
  Transmission Date: 20120403
  Serious: Yes (Other)
  Sender: FDA-Public Use
  Company Number: US-GLAXOSMITHKLINE-A0951636A

PATIENT
  Age: 75 Year
  Sex: Female

DRUGS (1)
  1. VOTRIENT [Suspect]
     Dosage: 800MG PER DAY
     Route: 065

REACTIONS (3)
  - ASTHENIA [None]
  - LIVER FUNCTION TEST ABNORMAL [None]
  - SEDATION [None]
